FAERS Safety Report 10261883 (Version 1)
Quarter: 2014Q2

REPORT INFORMATION
  Report Type: Spontaneous
  Country: US (occurrence: None)
  Receive Date: 20140624
  Receipt Date: 20140624
  Transmission Date: 20141212
  Serious: No
  Sender: FDA-Public Use
  Company Number: None

PATIENT
  Age: 77 Year
  Sex: Female

DRUGS (1)
  1. FORTEO 20 MCG LILLY [Suspect]
     Indication: OSTEOPOROSIS
     Dosage: 20 MCG DAILY PO
     Route: 048
     Dates: start: 201404

REACTIONS (3)
  - Pain in extremity [None]
  - Weight increased [None]
  - Ill-defined disorder [None]
